FAERS Safety Report 20050753 (Version 1)
Quarter: 2021Q4

REPORT INFORMATION
  Report Type: Spontaneous
  Country: ES (occurrence: ES)
  Receive Date: 20211110
  Receipt Date: 20211110
  Transmission Date: 20220304
  Serious: Yes (Hospitalization)
  Sender: FDA-Public Use
  Company Number: ES-AEMPS-1032368

PATIENT
  Age: 79 Year
  Sex: Male

DRUGS (9)
  1. OMEPRAZOLE [Suspect]
     Active Substance: OMEPRAZOLE
     Indication: Dyspepsia
     Dosage: 20.0 MG C/24 H ()
     Route: 048
     Dates: start: 20110205, end: 20200720
  2. LORMETAZEPAM CINFA 2 mg COMPRIMIDOS EFG, 20 comprimidos [Concomitant]
     Indication: Insomnia
     Dosage: 2.0 MG C/24 H NOC ()
     Route: 048
     Dates: start: 20170208
  3. FERBISOL 100 mg CAPSULAS GASTRORRESISTENTES, 50 capsulas [Concomitant]
     Indication: Anaemia
     Dosage: 1.0 CAPS C/12 H ()
     Route: 048
     Dates: start: 20170619
  4. CLIPPER 5 mg COMPRIMIDOS GASTRORRESISTENTES DE LIBERACION PROLONGAD... [Concomitant]
     Indication: Colitis
     Dosage: 10.0 MG A-DE ()
     Route: 048
     Dates: start: 20170422
  5. METFORMINA SANDOZ 850 mg COMPRIMIDOS RECUBIERTOS CON PELICULA EFG ,... [Concomitant]
     Indication: Type 2 diabetes mellitus
     Dosage: 850.0 MG DECE ()
     Route: 048
     Dates: start: 20110112
  6. CROMATONBIC B12 1000 INYECTABLE, 8 ampollas de 1 ml [Concomitant]
     Indication: Product used for unknown indication
     Dosage: 1.0 MG C/30 DIAS ()
     Route: 030
     Dates: start: 20140507
  7. ASPIRIN [Concomitant]
     Active Substance: ASPIRIN
     Indication: Type 2 diabetes mellitus
     Dosage: 100.0 MG DE ()
     Route: 048
     Dates: start: 20170209
  8. MEZAVANT 1200 MG COMPRIMIDOS DE LIBERACION PROLONGADA GASTRORRESIST... [Concomitant]
     Indication: Bronchitis
     Dosage: 2400.0 MG DECE ()
     Route: 048
     Dates: start: 20110131
  9. VYTORIN 10 mg/20 mg COMPRIMIDOS , 28 comprimidos [Concomitant]
     Indication: Hyperlipidaemia
     Dosage: 1.0 COMP CE ()
     Route: 048
     Dates: start: 20140923

REACTIONS (1)
  - Hypomagnesaemia [Recovered/Resolved]

NARRATIVE: CASE EVENT DATE: 20200720
